FAERS Safety Report 8186833-7 (Version None)
Quarter: 2012Q1

REPORT INFORMATION
  Report Type: 
  Country: None (occurrence: None)
  Receive Date: 20120301
  Receipt Date: 20120221
  Transmission Date: 20120608
  Serious: Yes (Other)
  Sender: FDA-Public Use
  Company Number: 2011SP057911

PATIENT
  Age: 64 Year
  Sex: Male

DRUGS (15)
  1. RIKKUNSHITO [Concomitant]
  2. AMOBAN [Concomitant]
  3. DESYREL [Concomitant]
  4. MIRTAZAPINE [Suspect]
     Indication: DEPRESSION
     Dosage: 15 MG;QD;PO : 30 MG;QD;PO : 15 MG;QD;PO
     Route: 048
     Dates: start: 20110916, end: 20110929
  5. MIRTAZAPINE [Suspect]
     Indication: DEPRESSION
     Dosage: 15 MG;QD;PO : 30 MG;QD;PO : 15 MG;QD;PO
     Route: 048
     Dates: start: 20110930, end: 20111114
  6. MIRTAZAPINE [Suspect]
     Indication: DEPRESSION
     Dosage: 15 MG;QD;PO : 30 MG;QD;PO : 15 MG;QD;PO
     Route: 048
     Dates: start: 20111115, end: 20111213
  7. TERBINAFINE HCL [Concomitant]
  8. SULPIRIDE [Concomitant]
  9. PREDNISOLONE [Concomitant]
  10. LANSOPRAZOLE [Concomitant]
  11. MONTELUKAST SODIUM [Concomitant]
  12. LENDORMIN [Concomitant]
  13. BETAMETHASONE BUTYRATE PROPIONATE [Concomitant]
  14. SEROQUEL [Concomitant]
  15. CHINESE HERBAL MEDICINE [Concomitant]

REACTIONS (2)
  - WHITE BLOOD CELL COUNT INCREASED [None]
  - EOSINOPHIL COUNT INCREASED [None]
